FAERS Safety Report 8854060 (Version 1)
Quarter: 2012Q4

REPORT INFORMATION
  Report Type: Spontaneous
  Country: US (occurrence: None)
  Receive Date: 20121019
  Receipt Date: 20121019
  Transmission Date: 20130627
  Serious: Yes (Other)
  Sender: FDA-Public Use
  Company Number: None

PATIENT
  Sex: Female
  Weight: 54.5 kg

DRUGS (2)
  1. MIRENA [Suspect]
     Indication: CONTRACEPTION
     Dosage: mirena ius once intrauterine
     Route: 015
     Dates: start: 201205
  2. MIRENA [Suspect]
     Indication: CONTRACEPTION
     Dates: start: 201210

REACTIONS (3)
  - Menorrhagia [None]
  - Device dislocation [None]
  - Uterine perforation [None]
